FAERS Safety Report 6269336-6 (Version None)
Quarter: 2009Q3

REPORT INFORMATION
  Report Type: 
  Country: None (occurrence: None)
  Receive Date: 20090713
  Receipt Date: 20090626
  Transmission Date: 20100115
  Serious: Yes (Other)
  Sender: FDA-Public Use
  Company Number: 2009EU002565

PATIENT
  Age: 5 Year
  Sex: Female

DRUGS (1)
  1. TACROLIMUS [Suspect]
     Indication: NEPHROTIC SYNDROME
     Dosage: /D,

REACTIONS (15)
  - CEREBRAL ATROPHY [None]
  - DIALYSIS [None]
  - EPSTEIN-BARR VIRAEMIA [None]
  - MIGRAINE [None]
  - ONYCHOMYCOSIS [None]
  - ORAL CANDIDIASIS [None]
  - OSTEOARTHRITIS [None]
  - PAPILLOMA VIRAL INFECTION [None]
  - PITUITARY HYPOPLASIA [None]
  - PNEUMONIA MYCOPLASMAL [None]
  - RENAL IMPAIRMENT [None]
  - RENAL TRANSPLANT [None]
  - SIMPLE PARTIAL SEIZURES [None]
  - SLEEP APNOEA SYNDROME [None]
  - TINEA PEDIS [None]
